FAERS Safety Report 25929816 (Version 1)
Quarter: 2025Q4

REPORT INFORMATION
  Report Type: Spontaneous
  Country: GB (occurrence: GB)
  Receive Date: 20251016
  Receipt Date: 20251016
  Transmission Date: 20260117
  Serious: Yes (Hospitalization)
  Sender: AMGEN
  Company Number: GB-AMGEN-GBRSP2025204522

PATIENT
  Sex: Male

DRUGS (1)
  1. ARANESP [Suspect]
     Active Substance: DARBEPOETIN ALFA
     Indication: Peritoneal dialysis
     Dosage: 100 MICROGRAM, QWK
     Route: 058

REACTIONS (1)
  - Adverse event [Unknown]
